FAERS Safety Report 18144274 (Version 1)
Quarter: 2020Q3

REPORT INFORMATION
  Report Type: Spontaneous
  Country: US (occurrence: US)
  Receive Date: 20200812
  Receipt Date: 20200812
  Transmission Date: 20201103
  Serious: No
  Sender: FDA-Public Use
  Company Number: None

PATIENT
  Age: 66 Year
  Sex: Male
  Weight: 91 kg

DRUGS (13)
  1. DECADRON 6 MG DAILY [Concomitant]
     Dates: start: 20200808
  2. LISINOPRIL 10 MG DAILY [Concomitant]
     Dates: start: 20200809
  3. ROBITUSSIN 200 MG Q 4HR PRN COUGH [Concomitant]
     Dates: start: 20200808
  4. ATORVASTATIN 40 MG DAILY [Concomitant]
     Dates: start: 20200809
  5. HEPARIN 5000 UNITS SQ Q 8HR [Concomitant]
     Dates: start: 20200808
  6. TYLENOL 500 MG Q 6 HR PRN [Concomitant]
     Dates: start: 20200808
  7. ZOFRAN 4MG IV Q 6HR PRN [Concomitant]
     Dates: start: 20200808
  8. PANTOPRAZOL 40 MG DAILY [Concomitant]
     Dates: start: 20200809
  9. REMDESIVIR. [Suspect]
     Active Substance: REMDESIVIR
     Indication: COVID-19
     Route: 041
     Dates: start: 20200812, end: 20200812
  10. DUONEB NEBULIZER Q 6HR PRN [Concomitant]
     Dates: start: 20200808
  11. CEPACOL LOZENGE 1 LOZENGE PRN [Concomitant]
     Dates: start: 20200808
  12. REMDESIVIR. [Suspect]
     Active Substance: REMDESIVIR
     Indication: COVID-19
     Route: 041
     Dates: start: 20200809, end: 20200811
  13. ASPIRIN 81 MG DAILY [Concomitant]
     Dates: start: 20200809

REACTIONS (1)
  - Liver function test increased [None]

NARRATIVE: CASE EVENT DATE: 20200812
